FAERS Safety Report 15690728 (Version 1)
Quarter: 2018Q4

REPORT INFORMATION
  Report Type: Report from Study
  Country: US (occurrence: US)
  Receive Date: 20181205
  Receipt Date: 20181205
  Transmission Date: 20190205
  Serious: Yes (Hospitalization)
  Sender: FDA-Public Use
  Company Number: US-THERAVANCE-2018-000027

PATIENT
  Sex: Female

DRUGS (1)
  1. TELAVANCIN [Suspect]
     Active Substance: TELAVANCIN
     Indication: STAPHYLOCOCCAL BACTERAEMIA
     Dosage: 291.2 MG, QD
     Route: 042
     Dates: start: 20180321, end: 20180325

REACTIONS (1)
  - Serratia infection [Not Recovered/Not Resolved]

NARRATIVE: CASE EVENT DATE: 20180325
